FAERS Safety Report 20912124 (Version 1)
Quarter: 2022Q2

REPORT INFORMATION
  Report Type: Spontaneous
  Country: CN (occurrence: CN)
  Receive Date: 20220603
  Receipt Date: 20220603
  Transmission Date: 20220720
  Serious: Yes (Hospitalization)
  Sender: FDA-Public Use
  Company Number: CN-AstraZeneca-2022A187653

PATIENT
  Age: 76 Year
  Sex: Male

DRUGS (6)
  1. METOPROLOL [Suspect]
     Active Substance: METOPROLOL
     Indication: Hypertension
     Dosage: STRENGTH: 47.5MG
     Route: 048
     Dates: start: 202201, end: 20220518
  2. RED YEAST [Suspect]
     Active Substance: RED YEAST
     Indication: Lipids increased
     Dosage: STRENGTH: .3MG
     Route: 048
     Dates: start: 202201, end: 20220518
  3. ASPIRIN [Suspect]
     Active Substance: ASPIRIN
     Indication: Product used for unknown indication
     Route: 065
  4. LANSOPRAZOLE [Concomitant]
     Active Substance: LANSOPRAZOLE
     Indication: Abdominal discomfort
     Dosage: QAM
     Route: 048
  5. IRBESARTAN [Concomitant]
     Active Substance: IRBESARTAN
     Indication: Product used for unknown indication
     Dosage: BEFORE BREAKFAST
     Route: 048
  6. HYDROCHLOROTHIAZIDE [Concomitant]
     Active Substance: HYDROCHLOROTHIAZIDE
     Indication: Product used for unknown indication
     Dosage: BEFORE BREAKFAST
     Route: 048

REACTIONS (7)
  - Decreased appetite [Recovering/Resolving]
  - Constipation [Recovering/Resolving]
  - Hypoaesthesia [Recovering/Resolving]
  - Hypoaesthesia oral [Recovering/Resolving]
  - Discomfort [Recovering/Resolving]
  - Dyspepsia [Recovering/Resolving]
  - Poor quality sleep [Unknown]
